FAERS Safety Report 14478513 (Version 1)
Quarter: 2018Q1

REPORT INFORMATION
  Report Type: Spontaneous
  Country: US (occurrence: US)
  Receive Date: 20180202
  Receipt Date: 20180202
  Transmission Date: 20180509
  Serious: Yes (Death, Hospitalization, Other)
  Sender: FDA-Public Use
  Company Number: US-ACCORD-063098

PATIENT
  Age: 19 Month
  Sex: Male

DRUGS (8)
  1. GANCICLOVIR. [Concomitant]
     Active Substance: GANCICLOVIR
     Indication: PROPHYLAXIS
  2. PREDNISONE. [Suspect]
     Active Substance: PREDNISONE
     Indication: IMMUNOSUPPRESSION
     Dosage: OVER THE FIRST WEEK
     Route: 048
  3. VINCRISTINE [Concomitant]
     Active Substance: VINCRISTINE
     Indication: HEPATOBLASTOMA
  4. CISPLATIN. [Concomitant]
     Active Substance: CISPLATIN
     Indication: HEPATOBLASTOMA
  5. CIDOFOVIR. [Concomitant]
     Active Substance: CIDOFOVIR
     Indication: IMMUNOSUPPRESSION
  6. METHYLPREDNISOLONE. [Suspect]
     Active Substance: METHYLPREDNISOLONE
     Indication: IMMUNOSUPPRESSION
     Dosage: INITIATED INTRAOPERATIVELY
  7. TACROLIMUS. [Suspect]
     Active Substance: TACROLIMUS
     Indication: IMMUNOSUPPRESSION
     Dosage: INITIATED POSTOPERATIVE DAY 1 TO ACHIEVE TROUGH LEVELS OF 10-12 NG/ML
     Route: 048
  8. FLUOROURACIL. [Concomitant]
     Active Substance: FLUOROURACIL
     Indication: HEPATOBLASTOMA

REACTIONS (3)
  - Epstein-Barr viraemia [Fatal]
  - Post transplant lymphoproliferative disorder [Fatal]
  - Adenovirus infection [Unknown]
